FAERS Safety Report 8603502-7 (Version None)
Quarter: 2012Q3

REPORT INFORMATION
  Report Type: 
  Country: None (occurrence: None)
  Receive Date: 20120817
  Receipt Date: 20120813
  Transmission Date: 20120928
  Serious: Yes (Life-Threatening, Other)
  Sender: FDA-Public Use
  Company Number: US-ASTRAZENECA-2012SE52951

PATIENT
  Age: 58 Year
  Sex: Male
  Weight: 108.9 kg

DRUGS (5)
  1. CARVEDILOL [Concomitant]
     Indication: CARDIAC DISORDER
     Route: 048
  2. CRESTOR [Concomitant]
     Route: 048
  3. ENALAPRIL [Concomitant]
     Indication: CARDIAC DISORDER
     Route: 048
  4. NEXIUM [Suspect]
     Indication: DYSPEPSIA
     Route: 048
  5. LIPITOR [Concomitant]

REACTIONS (5)
  - CARDIAC FAILURE [None]
  - APPARENT DEATH [None]
  - CARDIAC DISORDER [None]
  - ADVERSE EVENT [None]
  - MYOCARDIAL INFARCTION [None]
